FAERS Safety Report 17480415 (Version 2)
Quarter: 2020Q3

REPORT INFORMATION
  Report Type: Spontaneous
  Country: US (occurrence: US)
  Receive Date: 20200228
  Receipt Date: 20200707
  Transmission Date: 20201102
  Serious: No
  Sender: FDA-Public Use
  Company Number: US-JNJFOC-20200228338

PATIENT
  Age: 4 Decade
  Sex: Male

DRUGS (2)
  1. DUTASTERIDE AND TAMSULOSIN HCL [Concomitant]
     Indication: PROSTATIC DISORDER
     Route: 065
     Dates: start: 20191010
  2. MENS ROGAINE EXTRA STRENGTH [Suspect]
     Active Substance: MINOXIDIL
     Indication: ALOPECIA
     Dosage: RECOMMENDED AMOUNT
     Route: 061
     Dates: start: 20191115, end: 20191205

REACTIONS (1)
  - Pruritus [Recovered/Resolved]

NARRATIVE: CASE EVENT DATE: 20191201
